FAERS Safety Report 17133965 (Version 1)
Quarter: 2019Q4

REPORT INFORMATION
  Report Type: Spontaneous
  Country: US (occurrence: US)
  Receive Date: 20191209
  Receipt Date: 20191209
  Transmission Date: 20200122
  Serious: Yes (Other)
  Sender: FDA-Public Use
  Company Number: None

PATIENT
  Age: 62 Year
  Sex: Female
  Weight: 93.15 kg

DRUGS (22)
  1. SYNTHROID [Concomitant]
     Active Substance: LEVOTHYROXINE SODIUM
  2. OMEGA-3 THEYL ESTERS [Concomitant]
  3. VOLTREN [Concomitant]
  4. VIT. B2 [Concomitant]
  5. MAGNESIUM COMPLEX [Concomitant]
  6. VIT. B COMPLEX W/VIT C [Concomitant]
  7. MAZIDE [Concomitant]
  8. AMBIEN [Concomitant]
     Active Substance: ZOLPIDEM TARTRATE
  9. VIT. V [Concomitant]
  10. CUT. E [Concomitant]
  11. EMGALITY [Suspect]
     Active Substance: GALCANEZUMAB-GNLM
     Indication: MIGRAINE
     Route: 030
     Dates: start: 20191206, end: 20191206
  12. FLEXERIL [Concomitant]
     Active Substance: CYCLOBENZAPRINE HYDROCHLORIDE
  13. BENADRYL [Concomitant]
     Active Substance: DIPHENHYDRAMINE HYDROCHLORIDE
  14. WARFARIN [Concomitant]
     Active Substance: WARFARIN
  15. ASPIRIN. [Concomitant]
     Active Substance: ASPIRIN
  16. XANAX [Concomitant]
     Active Substance: ALPRAZOLAM
  17. FOLIC ACID. [Concomitant]
     Active Substance: FOLIC ACID
  18. COQ10 [Concomitant]
     Active Substance: UBIDECARENONE
  19. CUT. D3 [Concomitant]
  20. ZYRTEC [Concomitant]
     Active Substance: CETIRIZINE HYDROCHLORIDE
  21. FIORICET [Concomitant]
     Active Substance: ACETAMINOPHEN\BUTALBITAL\CAFFEINE
  22. CURAMED [Concomitant]

REACTIONS (4)
  - Aphonia [None]
  - Dyspnoea [None]
  - Urticaria [None]
  - Rash [None]

NARRATIVE: CASE EVENT DATE: 20191206
